FAERS Safety Report 18978279 (Version 1)
Quarter: 2021Q1

REPORT INFORMATION
  Report Type: Other
  Country: US (occurrence: US)
  Receive Date: 20210307
  Receipt Date: 20210307
  Transmission Date: 20210420
  Serious: No
  Sender: FDA-Public Use
  Company Number: US-ROCHE-2777633

PATIENT
  Sex: Female

DRUGS (10)
  1. MECLIZINE HCL [Concomitant]
     Active Substance: MECLIZINE HYDROCHLORIDE
     Indication: VERTIGO
     Route: 048
     Dates: start: 20180608
  2. OCREVUS [Suspect]
     Active Substance: OCRELIZUMAB
     Indication: MULTIPLE SCLEROSIS
     Route: 042
  3. XANAX [Concomitant]
     Active Substance: ALPRAZOLAM
     Indication: ANXIETY
     Route: 048
     Dates: start: 20171115, end: 20200806
  4. TEMAZEPAM. [Concomitant]
     Active Substance: TEMAZEPAM
     Indication: INSOMNIA
     Dosage: ON 08/FEB/2021, LAST DOSE
     Route: 048
     Dates: start: 20170216
  5. TIZANIDINE HCL [Concomitant]
     Active Substance: TIZANIDINE HYDROCHLORIDE
     Indication: MUSCLE SPASTICITY
     Dosage: LAST DOSE ON 03/FEB/2021
     Route: 048
     Dates: start: 20190813
  6. HYDROCHLOROTHIAZIDE;LISINOPRIL [Concomitant]
     Active Substance: HYDROCHLOROTHIAZIDE\LISINOPRIL
     Dosage: 20?12.5 MG
     Route: 048
     Dates: start: 20190219
  7. OCREVUS [Suspect]
     Active Substance: OCRELIZUMAB
     Route: 042
     Dates: start: 20210208
  8. VENLAFAXINE HCL [Concomitant]
     Active Substance: VENLAFAXINE HYDROCHLORIDE
     Indication: DEPRESSION
     Dosage: LAST DOSE ON 03/SEP/2020
     Route: 048
     Dates: start: 20200903
  9. AVONEX [Concomitant]
     Active Substance: INTERFERON BETA-1A
  10. DOTAREM [Concomitant]
     Active Substance: GADOTERATE MEGLUMINE
     Dosage: 0.5 MMOL/ML
     Route: 042

REACTIONS (11)
  - Vitamin B12 deficiency [Unknown]
  - Vitamin D deficiency [Unknown]
  - Fatigue [Unknown]
  - Balance disorder [Unknown]
  - Insomnia [Unknown]
  - Dysaesthesia [Unknown]
  - Influenza [Unknown]
  - Headache [Unknown]
  - Visual impairment [Unknown]
  - Gait disturbance [Unknown]
  - Vision blurred [Unknown]
